FAERS Safety Report 15471726 (Version 1)
Quarter: 2018Q4

REPORT INFORMATION
  Report Type: Report from Study
  Country: CA (occurrence: CA)
  Receive Date: 20181008
  Receipt Date: 20181008
  Transmission Date: 20190205
  Serious: Yes (Hospitalization, Other)
  Sender: FDA-Public Use
  Company Number: CA-IPSEN BIOPHARMACEUTICALS, INC.-2018-10339

PATIENT
  Age: 62 Year
  Sex: Female
  Weight: 54.4 kg

DRUGS (1)
  1. SOMATULINE AUTOGEL 120MG [Suspect]
     Active Substance: LANREOTIDE ACETATE
     Indication: GASTROENTEROPANCREATIC NEUROENDOCRINE TUMOUR DISEASE
     Dosage: 120 MG
     Route: 058

REACTIONS (5)
  - Facial paralysis [Recovering/Resolving]
  - Thinking abnormal [Recovering/Resolving]
  - Drooling [Recovering/Resolving]
  - Fine motor skill dysfunction [Recovering/Resolving]
  - Communication disorder [Recovering/Resolving]

NARRATIVE: CASE EVENT DATE: 201806
